FAERS Safety Report 20670471 (Version 1)
Quarter: 2022Q2

REPORT INFORMATION
  Report Type: Spontaneous
  Country: BR (occurrence: BR)
  Receive Date: 20220404
  Receipt Date: 20220404
  Transmission Date: 20220721
  Serious: Yes (Other)
  Sender: FDA-Public Use
  Company Number: BR-TAKEDA-2022TUS021400

PATIENT
  Age: 40 Year
  Sex: Male

DRUGS (7)
  1. ENTYVIO [Suspect]
     Active Substance: VEDOLIZUMAB
     Indication: Product used for unknown indication
     Dosage: UNK
     Route: 065
     Dates: start: 20190726
  2. MESALAMINE [Suspect]
     Active Substance: MESALAMINE
     Indication: Product used for unknown indication
     Dosage: 3600 MILLIGRAM
     Route: 065
  3. MESALAMINE [Suspect]
     Active Substance: MESALAMINE
     Dosage: 500 MILLIGRAM
     Route: 065
     Dates: start: 201806
  4. MESALAMINE [Suspect]
     Active Substance: MESALAMINE
     Dosage: 4800 MILLIGRAM
     Route: 065
  5. AZATHIOPRINE [Suspect]
     Active Substance: AZATHIOPRINE
     Indication: Product used for unknown indication
     Dosage: 150 MILLIGRAM
     Route: 065
     Dates: start: 20200129
  6. PREDNISONE [Concomitant]
     Active Substance: PREDNISONE
     Dosage: 40 MILLIGRAM
     Dates: start: 201704
  7. PREDNISONE [Concomitant]
     Active Substance: PREDNISONE
     Dosage: UNK
     Dates: start: 201710

REACTIONS (4)
  - Colitis ulcerative [Unknown]
  - Weight decreased [Unknown]
  - Large intestine polyp [Unknown]
  - Enzyme level increased [Unknown]

NARRATIVE: CASE EVENT DATE: 20190524
